FAERS Safety Report 5446404-X (Version None)
Quarter: 2007Q3

REPORT INFORMATION
  Report Type: 
  Country: None (occurrence: None)
  Receive Date: 20070907
  Receipt Date: 20070829
  Transmission Date: 20080115
  Serious: Yes (Hospitalization)
  Sender: FDA-Public Use
  Company Number: DE-NOVOPROD-266961

PATIENT
  Sex: Female
  Weight: 59 kg

DRUGS (6)
  1. INSULIN DETEMIR FLEXPEN NN729 [Suspect]
     Indication: TYPE 1 DIABETES MELLITUS
     Dosage: UNK, QD
     Route: 058
     Dates: start: 20070426
  2. NOVORAPID FLEXPEN [Suspect]
     Indication: TYPE 1 DIABETES MELLITUS
     Route: 058
     Dates: start: 20070426
  3. SIMVASTATIN [Concomitant]
     Dosage: UNK MG, QD
     Route: 048
     Dates: start: 20070501
  4. ASPIRIN [Concomitant]
     Dosage: UNK MG, QD
     Route: 048
     Dates: start: 20020101
  5. RAMIPRIL [Concomitant]
     Dosage: UNK, QD
     Route: 048
     Dates: start: 20070208
  6. DIAZEPAM [Concomitant]
     Dosage: UNK, QD
     Route: 048
     Dates: start: 20010101

REACTIONS (1)
  - LOSS OF CONSCIOUSNESS [None]
